FAERS Safety Report 16382543 (Version 3)
Quarter: 2019Q3

REPORT INFORMATION
  Report Type: Report from Study
  Country: JP (occurrence: JP)
  Receive Date: 20190603
  Receipt Date: 20190801
  Transmission Date: 20191004
  Serious: Yes (Other)
  Sender: FDA-Public Use
  Company Number: JP-CELGENEUS-JPN-20190509609

PATIENT
  Age: 42 Year
  Sex: Female
  Weight: 60 kg

DRUGS (11)
  1. OTEZLA [Suspect]
     Active Substance: APREMILAST
     Dosage: 60 MILLIGRAM
     Route: 048
     Dates: start: 20190501, end: 20190523
  2. ALLEGRA [Suspect]
     Active Substance: FEXOFENADINE HYDROCHLORIDE
     Indication: PSORIASIS
     Dosage: 240 MILLIGRAM
     Route: 048
  3. DOVOBET [Concomitant]
     Active Substance: BETAMETHASONE\CALCIPOTRIENE
     Indication: PSORIATIC ARTHROPATHY
     Dosage: AS MUCH AS SUFFICES
     Route: 061
  4. OTEZLA [Suspect]
     Active Substance: APREMILAST
     Indication: PSORIASIS
     Dosage: 10 MILLIGRAM
     Route: 048
     Dates: start: 20190426, end: 20190426
  5. OTEZLA [Suspect]
     Active Substance: APREMILAST
     Dosage: 30 MILLIGRAM
     Route: 048
     Dates: start: 20190428, end: 20190428
  6. ALLEGRA [Suspect]
     Active Substance: FEXOFENADINE HYDROCHLORIDE
     Indication: PSORIATIC ARTHROPATHY
  7. DOVOBET [Concomitant]
     Active Substance: BETAMETHASONE\CALCIPOTRIENE
     Dosage: AS MUCH AS SUFFICES
     Route: 061
  8. OTEZLA [Suspect]
     Active Substance: APREMILAST
     Dosage: 40 MILLIGRAM
     Route: 048
     Dates: start: 20190429, end: 20190429
  9. OTEZLA [Suspect]
     Active Substance: APREMILAST
     Indication: PSORIATIC ARTHROPATHY
     Dosage: 20 MILLIGRAM
     Route: 048
     Dates: start: 20190427, end: 20190427
  10. OTEZLA [Suspect]
     Active Substance: APREMILAST
     Dosage: 50 MILLIGRAM
     Route: 048
     Dates: start: 20190430, end: 20190430
  11. DOVOBET [Concomitant]
     Active Substance: BETAMETHASONE\CALCIPOTRIENE
     Indication: PSORIASIS
     Dosage: AS MUCH AS SUFFICES
     Route: 061

REACTIONS (2)
  - Therapeutic response decreased [Unknown]
  - Hepatic function abnormal [Unknown]

NARRATIVE: CASE EVENT DATE: 20190523
